FAERS Safety Report 9071555 (Version 1)
Quarter: 2013Q1

REPORT INFORMATION
  Report Type: Report from Study
  Country: US (occurrence: US)
  Receive Date: 20130129
  Receipt Date: 20130129
  Transmission Date: 20140127
  Serious: No
  Sender: FDA-Public Use
  Company Number: US-ABBOTT-12P-163-0925977-00

PATIENT
  Age: 55 Year
  Sex: Female

DRUGS (10)
  1. HUMIRA 40 MG/0.8 ML PEN [Suspect]
     Indication: CROHN^S DISEASE
     Dates: start: 20120210
  2. MERCAPTOPURINE [Concomitant]
     Indication: INFLAMMATION
     Dosage: DAILY
  3. LYRICA [Concomitant]
     Indication: PAIN
  4. TRAMADOL HCL [Concomitant]
     Indication: PAIN
  5. FLEXERIL [Concomitant]
     Indication: PAIN
  6. MULTIVITAMIN [Concomitant]
     Indication: SUPPLEMENTATION THERAPY
     Dosage: DAILY
  7. VITAMIN C [Concomitant]
     Indication: SUPPLEMENTATION THERAPY
     Dosage: DAILY
  8. VITAMIN D [Concomitant]
     Indication: SUPPLEMENTATION THERAPY
     Dosage: DAILY
  9. SEROQUEL [Concomitant]
     Indication: INSOMNIA
     Dosage: AT BED TIME
  10. TRAZODONE [Concomitant]
     Indication: INSOMNIA
     Dosage: AT BED TIME

REACTIONS (2)
  - Vomiting [Recovering/Resolving]
  - Asthenia [Recovering/Resolving]
